FAERS Safety Report 10089237 (Version 1)
Quarter: 2014Q2

REPORT INFORMATION
  Report Type: Report from Study
  Country: BD (occurrence: BD)
  Receive Date: 20140421
  Receipt Date: 20140421
  Transmission Date: 20141212
  Serious: Yes (Death, Life-Threatening, Hospitalization, Other)
  Sender: FDA-Public Use
  Company Number: BD-PFIZER INC-2014105284

PATIENT
  Age: 35 Year
  Sex: Male

DRUGS (1)
  1. AZITHROMYCIN [Suspect]
     Dosage: UNK

REACTIONS (7)
  - Sepsis [Fatal]
  - Electrolyte imbalance [Fatal]
  - Toxic epidermal necrolysis [Unknown]
  - Hypoproteinaemia [Unknown]
  - Dehydration [Unknown]
  - Corneal opacity [Unknown]
  - Alopecia [Unknown]
